FAERS Safety Report 26011478 (Version 1)
Quarter: 2025Q4

REPORT INFORMATION
  Report Type: Spontaneous
  Country: US (occurrence: None)
  Receive Date: 20251106
  Receipt Date: 20251106
  Transmission Date: 20260118
  Serious: Yes (Disabling, Other)
  Sender: FDA-CTU
  Company Number: None

PATIENT
  Age: 27 Year
  Sex: Female
  Weight: 87.75 kg

DRUGS (6)
  1. DESVENLAFAXINE [Suspect]
     Active Substance: DESVENLAFAXINE
     Indication: Depression
     Dates: start: 20230720, end: 20250211
  2. Clonidine .2mg for anxiety [Concomitant]
  3. lorazepam .5mg as needed for anxiety [Concomitant]
  4. Buspirone 10mg twice daily for depression and anxiety [Concomitant]
  5. Spironolactone 100mg for hair loss [Concomitant]
  6. minoxidil 1.25 mg for hair loss [Concomitant]

REACTIONS (13)
  - Withdrawal syndrome [None]
  - Panic attack [None]
  - Dizziness [None]
  - Vertigo [None]
  - Near death experience [None]
  - Brain fog [None]
  - Balance disorder [None]
  - Coordination abnormal [None]
  - Anxiety [None]
  - Sympathomimetic effect [None]
  - Decreased appetite [None]
  - Insomnia [None]
  - Weight decreased [None]

NARRATIVE: CASE EVENT DATE: 20250211
